FAERS Safety Report 26064015 (Version 1)
Quarter: 2025Q4

REPORT INFORMATION
  Report Type: Spontaneous
  Country: US (occurrence: US)
  Receive Date: 20251119
  Receipt Date: 20251119
  Transmission Date: 20260117
  Serious: Yes (Other)
  Sender: ROCHE
  Company Number: US-ROCHE-10000439121

PATIENT

DRUGS (2)
  1. CELLCEPT [Suspect]
     Active Substance: MYCOPHENOLATE MOFETIL
     Indication: Multiple sclerosis
     Route: 065
     Dates: end: 202511
  2. KESIMPTA [Concomitant]
     Active Substance: OFATUMUMAB

REACTIONS (5)
  - Abdominal pain upper [Unknown]
  - Fatigue [Unknown]
  - Hypersomnia [Unknown]
  - Impaired gastric emptying [Unknown]
  - Off label use [Unknown]
